FAERS Safety Report 23988419 (Version 3)
Quarter: 2024Q3

REPORT INFORMATION
  Report Type: Spontaneous
  Country: CZ (occurrence: CZ)
  Receive Date: 20240619
  Receipt Date: 20240704
  Transmission Date: 20241017
  Serious: Yes (Hospitalization, Other)
  Sender: AUROBINDO
  Company Number: CZ-TEVA-VS-3206454

PATIENT
  Age: 41 Year
  Sex: Female

DRUGS (19)
  1. MELPHALAN [Suspect]
     Active Substance: MELPHALAN
     Indication: Chemotherapy
     Dosage: UNK (HIGH-DOSE BEAM)
     Route: 065
     Dates: start: 20230906
  2. MELPHALAN [Suspect]
     Active Substance: MELPHALAN
     Indication: Peripheral T-cell lymphoma unspecified
  3. CYTARABINE [Suspect]
     Active Substance: CYTARABINE
     Indication: Chemotherapy
     Dosage: UNK (HIGH-DOSE BEAM)
     Route: 065
     Dates: start: 20230906
  4. CYTARABINE [Suspect]
     Active Substance: CYTARABINE
     Indication: Peripheral T-cell lymphoma unspecified
  5. PREDNISONE [Suspect]
     Active Substance: PREDNISONE
     Indication: Chemotherapy
     Dosage: 100 MILLIGRAM (CHEPA REGIMEN P.O)
     Route: 048
     Dates: start: 20230330, end: 20230724
  6. PREDNISONE [Suspect]
     Active Substance: PREDNISONE
     Indication: Peripheral T-cell lymphoma unspecified
  7. DOXORUBICIN [Suspect]
     Active Substance: DOXORUBICIN
     Indication: Chemotherapy
     Dosage: 500 MILLIGRAM/SQ. METER
     Route: 065
     Dates: start: 20230330, end: 20230724
  8. DOXORUBICIN [Suspect]
     Active Substance: DOXORUBICIN
     Indication: Peripheral T-cell lymphoma unspecified
  9. ETOPOSIDE [Suspect]
     Active Substance: ETOPOSIDE
     Indication: Chemotherapy
     Dosage: 100 MILLIGRAM
     Route: 065
     Dates: start: 20230325
  10. ETOPOSIDE [Suspect]
     Active Substance: ETOPOSIDE
     Indication: Peripheral T-cell lymphoma unspecified
     Dosage: 100 MILLIGRAM/SQ. METER (CHEPA REGIMEN)
     Route: 065
     Dates: start: 20230330, end: 20230724
  11. ETOPOSIDE [Suspect]
     Active Substance: ETOPOSIDE
     Dosage: UNK (HIGH-DOSE BEAM CHEMOTHERAPY)
     Route: 065
     Dates: start: 20230906
  12. BRENTUXIMAB VEDOTIN [Suspect]
     Active Substance: BRENTUXIMAB VEDOTIN
     Indication: Chemotherapy
     Dosage: 1.8 MILLIGRAM/KILOGRAM (CHEPA REGIMEN)
     Route: 065
     Dates: start: 20230330, end: 20230724
  13. BRENTUXIMAB VEDOTIN [Suspect]
     Active Substance: BRENTUXIMAB VEDOTIN
     Indication: Peripheral T-cell lymphoma unspecified
  14. CYCLOPHOSPHAMIDE [Suspect]
     Active Substance: CYCLOPHOSPHAMIDE
     Indication: Chemotherapy
     Dosage: 750 MILLIGRAM/SQ. METER (CHEPA REGIMEN)
     Route: 065
     Dates: start: 20230330, end: 20230724
  15. CYCLOPHOSPHAMIDE [Suspect]
     Active Substance: CYCLOPHOSPHAMIDE
     Indication: Peripheral T-cell lymphoma unspecified
  16. CARMUSTINE [Suspect]
     Active Substance: CARMUSTINE
     Indication: Chemotherapy
     Dosage: UNK (HIGH-DOSE BEAM)
     Route: 065
     Dates: start: 20230906
  17. CARMUSTINE [Suspect]
     Active Substance: CARMUSTINE
     Indication: Peripheral T-cell lymphoma unspecified
  18. FILGRASTIM [Suspect]
     Active Substance: FILGRASTIM
     Indication: Chemotherapy
     Dosage: UNK (6 CYCLES OF CHEPA)
     Route: 065
     Dates: end: 20230724
  19. FILGRASTIM [Suspect]
     Active Substance: FILGRASTIM
     Indication: Peripheral T-cell lymphoma unspecified

REACTIONS (2)
  - Stomatitis [Recovered/Resolved]
  - Peripheral sensorimotor neuropathy [Unknown]
